FAERS Safety Report 5476805-5 (Version None)
Quarter: 2007Q4

REPORT INFORMATION
  Report Type: 
  Country: None (occurrence: None)
  Receive Date: 20071002
  Receipt Date: 20070924
  Transmission Date: 20080405
  Serious: Yes (Other)
  Sender: FDA-Public Use
  Company Number: 2007S1000234

PATIENT
  Age: 49 Year
  Sex: Female
  Weight: 90.2658 kg

DRUGS (1)
  1. EVOCLIN [Suspect]
     Indication: FOLLICULITIS
     Dosage: 1 PCT; BID; TOP
     Route: 061
     Dates: start: 20070918, end: 20070922

REACTIONS (1)
  - DIARRHOEA HAEMORRHAGIC [None]
